FAERS Safety Report 18764718 (Version 1)
Quarter: 2021Q1

REPORT INFORMATION
  Report Type: Spontaneous
  Country: US (occurrence: US)
  Receive Date: 20210120
  Receipt Date: 20210120
  Transmission Date: 20210419
  Serious: No
  Sender: FDA-Public Use
  Company Number: US-PFIZER INC-2021036026

PATIENT
  Age: 37 Year
  Sex: Female

DRUGS (2)
  1. EUCRISA [Suspect]
     Active Substance: CRISABOROLE
     Indication: CONDITION AGGRAVATED
     Dosage: UNK, 2X/DAY
     Route: 061
     Dates: start: 20200831
  2. EUCRISA [Suspect]
     Active Substance: CRISABOROLE
     Dosage: UNK UNK, AS NEEDED
     Route: 061

REACTIONS (2)
  - Off label use [Unknown]
  - Eczema [Unknown]
